FAERS Safety Report 12622506 (Version 1)
Quarter: 2016Q3

REPORT INFORMATION
  Report Type: Spontaneous
  Country: US (occurrence: US)
  Receive Date: 20160804
  Receipt Date: 20160804
  Transmission Date: 20161109
  Serious: No
  Sender: FDA-Public Use
  Company Number: US-JUBILANT HOLLISTERSTIER LLC-1055856

PATIENT
  Age: 84 Year
  Sex: Female

DRUGS (1)
  1. POSITIVE SKIN TEST CONTROL - HISTAMINE [Suspect]
     Active Substance: HISTAMINE
     Indication: HYPERSENSITIVITY
     Route: 050

REACTIONS (1)
  - Drug ineffective [None]
